FAERS Safety Report 9104149 (Version 5)
Quarter: 2014Q1

REPORT INFORMATION
  Report Type: Spontaneous
  Country: US (occurrence: US)
  Receive Date: 20130219
  Receipt Date: 20140129
  Transmission Date: 20141002
  Serious: Yes (Hospitalization, Other)
  Sender: FDA-Public Use
  Company Number: US-ROCHE-595733

PATIENT
  Age: 14 Year
  Sex: Male

DRUGS (3)
  1. ACCUTANE [Suspect]
     Indication: ACNE CYSTIC
     Dosage: STARTED WITH 70 MG DAILY FROM 05 DEC 2000.
     Route: 065
     Dates: start: 20001205, end: 200105
  2. ACCUTANE [Suspect]
     Route: 065
     Dates: start: 20001205, end: 200105
  3. AMOXICILLINE [Concomitant]
     Indication: ACNE
     Dosage: AMOXICILLIN 250 MG 4 TIMES DAILY FOR 10 DAYS THEN 2 TIMES A DAY.
     Route: 065
     Dates: start: 20001115, end: 20010417

REACTIONS (10)
  - Crohn^s disease [Unknown]
  - Small intestinal obstruction [Recovering/Resolving]
  - Inflammatory bowel disease [Unknown]
  - Depression [Unknown]
  - Anal fistula [Unknown]
  - Polyp [Unknown]
  - Anal fissure [Unknown]
  - Melanocytic naevus [Unknown]
  - Dry skin [Unknown]
  - Blood uric acid increased [Unknown]
